FAERS Safety Report 13351556 (Version 1)
Quarter: 2017Q1

REPORT INFORMATION
  Report Type: Report from Study
  Country: US (occurrence: US)
  Receive Date: 20170320
  Receipt Date: 20170320
  Transmission Date: 20170429
  Serious: Yes (Disabling, Other)
  Sender: FDA-Public Use
  Company Number: US-GILEAD-2017-0261668

PATIENT
  Age: 64 Year
  Sex: Female

DRUGS (4)
  1. CARDIZEM [Concomitant]
     Active Substance: DILTIAZEM HYDROCHLORIDE
     Indication: PRODUCT USED FOR UNKNOWN INDICATION
     Dosage: UNK
     Route: 065
  2. RANOLAZINE [Suspect]
     Active Substance: RANOLAZINE
     Indication: ANGINA PECTORIS
     Dosage: 500 MG, UNK
     Route: 048
     Dates: start: 201609
  3. RANOLAZINE [Suspect]
     Active Substance: RANOLAZINE
     Dosage: 500 MG, QD IN THE MORNING
     Route: 048
  4. NITROGLYCERIN. [Concomitant]
     Active Substance: NITROGLYCERIN
     Indication: PRODUCT USED FOR UNKNOWN INDICATION
     Dosage: UNK AT NIGHT
     Route: 065

REACTIONS (11)
  - Fear [Unknown]
  - Inappropriate schedule of drug administration [Not Recovered/Not Resolved]
  - Gastrointestinal disorder [Unknown]
  - Osteoporosis [Not Recovered/Not Resolved]
  - Heart rate increased [Unknown]
  - Asthenia [Unknown]
  - Angina pectoris [Unknown]
  - Atrial fibrillation [Unknown]
  - Osteopenia [Not Recovered/Not Resolved]
  - Cardiac failure chronic [Unknown]
  - Cardiac disorder [Unknown]
